FAERS Safety Report 17616142 (Version 2)
Quarter: 2020Q2

REPORT INFORMATION
  Report Type: Report from Study
  Country: TW (occurrence: TW)
  Receive Date: 20200402
  Receipt Date: 20200409
  Transmission Date: 20200713
  Serious: Yes (Hospitalization, Other)
  Sender: FDA-Public Use
  Company Number: TW-BAYER-2018-205110

PATIENT
  Age: 32 Year
  Sex: Male

DRUGS (3)
  1. ADEMPAS [Suspect]
     Active Substance: RIOCIGUAT
     Indication: PULMONARY HYPERTENSION
     Dosage: 1 MG, TID
     Route: 048
     Dates: start: 20190401
  2. APIXABAN [Concomitant]
     Active Substance: APIXABAN
     Dosage: 10 MG, QD
  3. ADEMPAS [Suspect]
     Active Substance: RIOCIGUAT
     Indication: PULMONARY HYPERTENSION
     Dosage: 1 MG, TID
     Route: 048
     Dates: start: 20180910

REACTIONS (24)
  - Nausea [Recovered/Resolved]
  - Underweight [Recovered/Resolved]
  - Small intestinal obstruction [Recovered/Resolved]
  - Oedema peripheral [Recovered/Resolved]
  - Decreased appetite [None]
  - Intestinal stenosis [Recovered/Resolved]
  - Decreased appetite [Recovered/Resolved]
  - Intestinal polyp [Recovered/Resolved]
  - Abdominal distension [None]
  - Arrhythmia [Recovered/Resolved]
  - Haemoptysis [Recovered/Resolved]
  - Blood albumin decreased [None]
  - Fistula of small intestine [Recovered/Resolved]
  - Abdominal distension [Recovered/Resolved]
  - Fatigue [Recovered/Resolved]
  - Oedema peripheral [Recovered/Resolved]
  - Dizziness [None]
  - Pulmonary hypertension [Recovering/Resolving]
  - Blood sodium decreased [None]
  - Anaemia [Recovered/Resolved]
  - Pulmonary hypertension [Recovering/Resolving]
  - Blood potassium decreased [None]
  - Hypotension [None]
  - Fatigue [None]

NARRATIVE: CASE EVENT DATE: 20181103
